FAERS Safety Report 6675662-9 (Version None)
Quarter: 2010Q2

REPORT INFORMATION
  Report Type: 
  Country: None (occurrence: None)
  Receive Date: 20100409
  Receipt Date: 20100408
  Transmission Date: 20101027
  Serious: Yes (Life-Threatening)
  Sender: FDA-Public Use
  Company Number: US-B.I. PHARMACEUTICALS,INC./RIDGEFIELD-2010-BP-03449BP

PATIENT
  Age: 55 Year
  Sex: Male
  Weight: 90.72 kg

DRUGS (5)
  1. MICARDIS [Suspect]
     Indication: HYPERTENSION
     Dosage: 40 MG
     Dates: start: 20091111
  2. ATENOLOL [Concomitant]
     Dosage: 50 MG
  3. LOVASTATIN [Concomitant]
     Dosage: 40 MG
  4. MELOXICAM [Concomitant]
     Dosage: 7.5 MG
  5. LOVAZA [Concomitant]
     Dosage: 2000 MG

REACTIONS (5)
  - ANGIOEDEMA [None]
  - DYSPHAGIA [None]
  - LIP SWELLING [None]
  - PHARYNGEAL OEDEMA [None]
  - SWELLING FACE [None]
